FAERS Safety Report 4543245-2 (Version None)
Quarter: 2004Q4

REPORT INFORMATION
  Report Type: 
  Country: None (occurrence: None)
  Receive Date: 20041229
  Receipt Date: 20041220
  Transmission Date: 20050328
  Serious: Yes (Hospitalization)
  Sender: FDA-Public Use
  Company Number: K200401951

PATIENT
  Age: 90 Year
  Sex: Female

DRUGS (8)
  1. ALTACE [Suspect]
     Indication: HYPERTENSION
     Dosage: 10 MG, QD, ORAL
     Route: 048
     Dates: start: 20041112, end: 20041129
  2. ENOXAPARIN(ENOXAPARIN) .4ML [Suspect]
     Indication: THROMBOSIS PROPHYLAXIS
     Dosage: .4 ML , QD, SUBCUTANEOUS
     Route: 058
     Dates: start: 20041117, end: 20041129
  3. PLACEBO (PLACEBO) .4ML [Suspect]
     Indication: THROMBOSIS PROPHYLAXIS
     Dosage: .4 ML, QD , SUBCUTANEOUS
     Route: 058
  4. GLIMEPIRIDE(GLIMEPIRIDE) 3MG [Suspect]
     Indication: DIABETES MELLITUS
     Dosage: 3 MG , QD, ORAL
     Route: 048
  5. CANDESARTAN(CANDESARTAN) 8MG [Suspect]
     Indication: HYPERTENSION
     Dosage: 8 MG, QD, ORAL
     Route: 048
     Dates: start: 20041117, end: 20041129
  6. ASS ^CT-ARNEIMITTEL^(ACETYLSALICYLIC ACID) 100MG [Suspect]
     Indication: CORONARY ARTERY DISEASE
     Dosage: 100 MG, QD, ORAL
     Route: 048
  7. MIRTAZAPINE [Suspect]
     Indication: DEPRESSION
     Dosage: 30 MG, QD, ORAL
     Route: 048
  8. AMLODIPIN ^ORIFARM^(AMLODIPINE) 10MG [Suspect]
     Indication: HYPERTENSION
     Dosage: 10 MG, QD, ORAL
     Route: 048

REACTIONS (4)
  - CIRCULATORY COLLAPSE [None]
  - GASTROENTERITIS [None]
  - GASTROINTESTINAL HAEMORRHAGE [None]
  - HAEMOGLOBIN DECREASED [None]
